FAERS Safety Report 8185061-9 (Version None)
Quarter: 2012Q1

REPORT INFORMATION
  Report Type: 
  Country: None (occurrence: None)
  Receive Date: 20120305
  Receipt Date: 20120228
  Transmission Date: 20120608
  Serious: Yes (Other)
  Sender: FDA-Public Use
  Company Number: US-PFIZER INC-2012053165

PATIENT
  Sex: Female
  Weight: 53.968 kg

DRUGS (9)
  1. NEURONTIN [Suspect]
     Indication: NERVE INJURY
     Dosage: UNK
  2. LYRICA [Suspect]
     Indication: BACK PAIN
     Dosage: 150 MG, 2X/DAY
     Dates: start: 20100101
  3. LIPITOR [Suspect]
     Indication: BLOOD CHOLESTEROL INCREASED
     Dosage: 20 MG, DAILY
  4. NORCO [Concomitant]
     Indication: PAIN
     Dosage: UNK
  5. MIRAPEX [Concomitant]
     Indication: RESTLESS LEGS SYNDROME
     Dosage: UNK
  6. BUMEX [Concomitant]
     Dosage: UNK
  7. SYNTHROID [Concomitant]
     Indication: HYPOTHYROIDISM
     Dosage: 20 MG, DAILY
  8. LYRICA [Suspect]
     Indication: NERVE INJURY
     Dosage: UNK
  9. NEURONTIN [Suspect]
     Indication: BACK PAIN

REACTIONS (4)
  - MITRAL VALVE DISEASE [None]
  - CARDIAC FAILURE CONGESTIVE [None]
  - ARTHROPATHY [None]
  - DRUG INEFFECTIVE [None]
